FAERS Safety Report 13784513 (Version 1)
Quarter: 2017Q3

REPORT INFORMATION
  Report Type: Spontaneous
  Country: US (occurrence: US)
  Receive Date: 20170724
  Receipt Date: 20170724
  Transmission Date: 20171127
  Serious: No
  Sender: FDA-Public Use
  Company Number: US-IMPAX LABORATORIES, INC-2017-IPXL-01193

PATIENT
  Sex: Male
  Weight: 82 kg

DRUGS (8)
  1. VITAMIN C [Concomitant]
     Active Substance: ASCORBIC ACID
     Indication: VITAMIN SUPPLEMENTATION
     Dosage: 500 MG, UNK
     Route: 065
  2. RYTARY [Suspect]
     Active Substance: CARBIDOPA\LEVODOPA
     Dosage: 23.75/95 MG, 3 CAPSULES 3 TIMES A DAY
     Route: 048
     Dates: start: 20170421
  3. RYTARY [Suspect]
     Active Substance: CARBIDOPA\LEVODOPA
     Dosage: 23.75/95 MG, 2 CAPSULES 3 TIMES A DAY
     Route: 048
     Dates: start: 2017
  4. ASPIRIN. [Concomitant]
     Active Substance: ASPIRIN
     Indication: PRODUCT USED FOR UNKNOWN INDICATION
     Dosage: 81 MG, UNK
     Route: 065
  5. VITAMIN B12 [Concomitant]
     Active Substance: CYANOCOBALAMIN
     Indication: VITAMIN B12 DEFICIENCY
     Dosage: 5000 ?G, UNK
     Route: 065
  6. RYTARY [Suspect]
     Active Substance: CARBIDOPA\LEVODOPA
     Indication: PARKINSON^S DISEASE
     Dosage: 23.75/95 MG, 3 CAPSULES 3 TIMES A DAY
     Route: 048
     Dates: start: 20161114
  7. CRANBERRY. [Concomitant]
     Active Substance: CRANBERRY
     Indication: KIDNEY INFECTION
     Dosage: 4200 MG, UNK
     Route: 065
  8. RYTARY [Suspect]
     Active Substance: CARBIDOPA\LEVODOPA
     Dosage: 23.75/95 MG, 2 CAPSULES 3 TIMES A DAY
     Route: 048
     Dates: start: 20170302, end: 2017

REACTIONS (11)
  - Eye pruritus [Unknown]
  - Intentional product use issue [Unknown]
  - Ocular hyperaemia [Unknown]
  - Dizziness [Not Recovered/Not Resolved]
  - Diplopia [Recovered/Resolved]
  - Hallucination [Not Recovered/Not Resolved]
  - Dry eye [Unknown]
  - Memory impairment [Unknown]
  - Hypoacusis [Unknown]
  - Vision blurred [Unknown]
  - Fatigue [Not Recovered/Not Resolved]
